FAERS Safety Report 24027802 (Version 7)
Quarter: 2024Q4

REPORT INFORMATION
  Report Type: Report from Study
  Country: US (occurrence: US)
  Receive Date: 20240628
  Receipt Date: 20241002
  Transmission Date: 20250115
  Serious: Yes (Hospitalization, Other)
  Sender: ABBVIE
  Company Number: US-ABBVIE-5761356

PATIENT
  Sex: Male
  Weight: 73.481 kg

DRUGS (6)
  1. HUMIRA [Suspect]
     Active Substance: ADALIMUMAB
     Indication: Rheumatoid arthritis
     Dosage: FORM STRENGTH: 40MG
     Route: 058
     Dates: start: 201403, end: 202403
  2. HYDROXYCHLOROQUINE [Concomitant]
     Active Substance: HYDROXYCHLOROQUINE
     Indication: Rheumatoid arthritis
     Dosage: 1/ 1/2 PILL EVERYDAY
     Route: 048
     Dates: start: 201404, end: 2021
  3. HYDROXYCHLOROQUINE [Concomitant]
     Active Substance: HYDROXYCHLOROQUINE
     Indication: Rheumatoid arthritis
     Dosage: 1/ 1/2 PILL EVERYDAY
     Route: 048
     Dates: start: 202406
  4. ZYRTEC [Concomitant]
     Active Substance: CETIRIZINE HYDROCHLORIDE
     Indication: Sinusitis
  5. LEFLUNOMIDE [Concomitant]
     Active Substance: LEFLUNOMIDE
     Indication: Rheumatoid arthritis
     Dosage: 1 TABLET
     Route: 048
     Dates: start: 202403, end: 202406
  6. METHOTREXATE [Concomitant]
     Active Substance: METHOTREXATE
     Indication: Product used for unknown indication

REACTIONS (31)
  - Oxygen saturation decreased [Unknown]
  - Muscle spasms [Not Recovered/Not Resolved]
  - Loss of consciousness [Recovered/Resolved]
  - Fall [Recovering/Resolving]
  - Fall [Recovered/Resolved]
  - Cough [Recovered/Resolved]
  - Bronchopulmonary aspergillosis [Not Recovered/Not Resolved]
  - Dizziness [Not Recovered/Not Resolved]
  - Back pain [Recovered/Resolved]
  - Dyspnoea [Not Recovered/Not Resolved]
  - Drug ineffective [Not Recovered/Not Resolved]
  - Illness [Unknown]
  - Wheezing [Not Recovered/Not Resolved]
  - Weight decreased [Unknown]
  - Loss of consciousness [Recovered/Resolved]
  - Loss of consciousness [Unknown]
  - Fatigue [Unknown]
  - Disturbance in attention [Not Recovered/Not Resolved]
  - Cough [Recovered/Resolved]
  - Memory impairment [Not Recovered/Not Resolved]
  - Lower limb fracture [Unknown]
  - Head injury [Unknown]
  - Fall [Recovered/Resolved]
  - Craniofacial fracture [Recovered/Resolved]
  - Cough [Recovered/Resolved]
  - Pneumonia influenzal [Unknown]
  - Loss of consciousness [Recovered/Resolved]
  - Decreased appetite [Not Recovered/Not Resolved]
  - Lung disorder [Unknown]
  - Impaired driving ability [Not Recovered/Not Resolved]
  - Visual impairment [Not Recovered/Not Resolved]

NARRATIVE: CASE EVENT DATE: 20140101
